FAERS Safety Report 24110596 (Version 1)
Quarter: 2024Q3

REPORT INFORMATION
  Report Type: Spontaneous
  Country: US (occurrence: None)
  Receive Date: 20240718
  Receipt Date: 20240718
  Transmission Date: 20241017
  Serious: No
  Sender: Public
  Company Number: None

PATIENT
  Sex: Female

DRUGS (5)
  1. STELARA [Suspect]
     Active Substance: USTEKINUMAB
     Indication: Psoriasis
     Dosage: OTHER QUANTITY : INJECT 1 SYRINGE;?OTHER FREQUENCY : EVERY 12 WEEKS;?
     Route: 058
     Dates: start: 20210202
  2. DULOXETINE [Concomitant]
     Active Substance: DULOXETINE
  3. MOBIC [Concomitant]
     Active Substance: MELOXICAM
  4. STELARA [Concomitant]
     Active Substance: USTEKINUMAB
  5. SUPREP BOWEL SOL PREP KIT [Concomitant]

REACTIONS (2)
  - Surgery [None]
  - Intentional dose omission [None]
